FAERS Safety Report 15104238 (Version 1)
Quarter: 2018Q3

REPORT INFORMATION
  Report Type: Report from Study
  Country: IT (occurrence: IT)
  Receive Date: 20180703
  Receipt Date: 20180703
  Transmission Date: 20181010
  Serious: Yes (Hospitalization)
  Sender: FDA-Public Use
  Company Number: IT-TEVA-2018-IT-919514

PATIENT
  Age: 49 Year
  Sex: Male

DRUGS (3)
  1. ESCITALOPRAM [Suspect]
     Active Substance: ESCITALOPRAM OXALATE
     Route: 048
     Dates: start: 20161024, end: 20161024
  2. PAROXETINA RATIOPHARM 20 MG COMPRESSE RIVESTITE CON FILM [Suspect]
     Active Substance: PAROXETINE HYDROCHLORIDE
     Route: 048
     Dates: start: 20161024, end: 20161024
  3. MINIAS 2,5 MG/ML GOCCE ORALI, SOLUZIONE [Suspect]
     Active Substance: LORMETAZEPAM
     Route: 048
     Dates: start: 20161024, end: 20161024

REACTIONS (2)
  - Intentional self-injury [Recovered/Resolved]
  - Sopor [Recovered/Resolved]

NARRATIVE: CASE EVENT DATE: 20161024
